FAERS Safety Report 6851142-2 (Version None)
Quarter: 2010Q3

REPORT INFORMATION
  Report Type: 
  Country: None (occurrence: None)
  Receive Date: 20100716
  Receipt Date: 20100707
  Transmission Date: 20110219
  Serious: Yes (Other)
  Sender: FDA-Public Use
  Company Number: US-AMGEN-QUU422769

PATIENT
  Sex: Female

DRUGS (8)
  1. ENBREL [Suspect]
     Indication: JUVENILE ARTHRITIS
     Dates: start: 20090501
  2. VOLTAREN [Concomitant]
  3. PREVACID [Concomitant]
  4. ALLEGRA [Concomitant]
  5. TOPAMAX [Concomitant]
  6. PREDNISONE [Concomitant]
  7. ZYRTEC [Concomitant]
  8. FOLIC ACID [Concomitant]

REACTIONS (1)
  - OVULATION DISORDER [None]
